FAERS Safety Report 4367770-2 (Version None)
Quarter: 2004Q2

REPORT INFORMATION
  Report Type: 
  Country: None (occurrence: None)
  Receive Date: 20040601
  Receipt Date: 20040517
  Transmission Date: 20050107
  Serious: Yes (Hospitalization)
  Sender: FDA-Public Use
  Company Number: BE-AMGEN-US077927

PATIENT
  Sex: Female

DRUGS (10)
  1. ETANERCEPT [Suspect]
     Indication: RHEUMATOID ARTHRITIS
     Route: 058
     Dates: start: 19900602
  2. PIROXICAM [Concomitant]
     Dates: start: 19981013
  3. PREDNISOLONE [Concomitant]
     Dates: start: 19980202
  4. ESTROGEN NOS [Concomitant]
     Dates: start: 19851201
  5. NORGESTREL [Concomitant]
     Dates: start: 19851201
  6. ISRADIPINE [Concomitant]
     Dates: start: 19970528
  7. COLECALCIFEROL [Concomitant]
     Dates: start: 20000411
  8. CALCIUM CARBONATE [Concomitant]
     Dates: start: 19960218
  9. PAMIDRONATE DISODIUM [Concomitant]
     Dates: start: 20000525
  10. ACETASALICYLIC ACID [Concomitant]
     Dates: start: 19950729

REACTIONS (1)
  - RHEUMATOID NODULE [None]
